FAERS Safety Report 24092309 (Version 1)
Quarter: 2024Q3

REPORT INFORMATION
  Report Type: Spontaneous
  Country: FR (occurrence: None)
  Receive Date: 20240715
  Receipt Date: 20240715
  Transmission Date: 20241017
  Serious: Yes (Other)
  Sender: ASTRAZENECA
  Company Number: 2024A135800

PATIENT
  Age: 58 Year
  Sex: Female

DRUGS (3)
  1. ESOMEPRAZOLE [Suspect]
     Active Substance: ESOMEPRAZOLE
     Indication: Gastrooesophageal reflux disease
     Dosage: 40 UNK, 2/DAY
  2. ESOMEPRAZOLE [Suspect]
     Active Substance: ESOMEPRAZOLE
     Indication: Gastrooesophageal reflux disease
     Dosage: 20 UNK, 1/DAY
  3. ESOMEPRAZOLE [Suspect]
     Active Substance: ESOMEPRAZOLE
     Indication: Gastrooesophageal reflux disease
     Dosage: 20 UNK, 2/DAY

REACTIONS (3)
  - Thoracic vertebral fracture [Not Recovered/Not Resolved]
  - Complex regional pain syndrome [Recovered/Resolved]
  - Bone fissure [Recovered/Resolved]

NARRATIVE: CASE EVENT DATE: 20200101
